FAERS Safety Report 8616429-1 (Version None)
Quarter: 2012Q3

REPORT INFORMATION
  Report Type: 
  Country: None (occurrence: None)
  Receive Date: 20120823
  Receipt Date: 20120814
  Transmission Date: 20120928
  Serious: Yes (Other)
  Sender: FDA-Public Use
  Company Number: CHPA2012US010316

PATIENT
  Age: 71 Year
  Sex: Female

DRUGS (6)
  1. DRUG THERAPY NOS [Concomitant]
     Dosage: UNK, UNK
  2. EXCEDRIN EXTRA STRENGTH CAPLETS [Suspect]
     Dosage: 1/4 TO 1/2 DF, QD
     Route: 048
     Dates: start: 19990101
  3. EXCEDRIN EXTRA STRENGTH CAPLETS [Suspect]
     Indication: HEADACHE
     Dosage: 2 DF, QD
     Route: 048
  4. EXCEDRIN EXTRA STRENGTH CAPLETS [Suspect]
     Dosage: 1 DF, QD
     Route: 048
  5. BAYER WOMENS ASPIRIN PLUS CALCIUM [Concomitant]
     Indication: PAIN
     Dosage: 1/8 OR 1/4 UNK, PRN
     Route: 048
  6. VITAMIN B NOS [Concomitant]
     Indication: VITAMIN SUPPLEMENTATION
     Dosage: UNK, UNK
     Route: 048

REACTIONS (14)
  - HYPERTHYROIDISM [None]
  - UNDERDOSE [None]
  - IMMUNE SYSTEM DISORDER [None]
  - RENAL PAIN [None]
  - HYPOTHYROIDISM [None]
  - HYPERTENSION [None]
  - HERPES ZOSTER [None]
  - RENAL ATROPHY [None]
  - BACK PAIN [None]
  - MUSCULOSKELETAL PAIN [None]
  - SKIN DISCOLOURATION [None]
  - GOUT [None]
  - DRUG HYPERSENSITIVITY [None]
  - INCORRECT DRUG ADMINISTRATION DURATION [None]
